FAERS Safety Report 8049891-6 (Version None)
Quarter: 2012Q1

REPORT INFORMATION
  Report Type: 
  Country: None (occurrence: None)
  Receive Date: 20120117
  Receipt Date: 20120102
  Transmission Date: 20120608
  Serious: Yes (Hospitalization)
  Sender: FDA-Public Use
  Company Number: US-PFIZER INC-2012000393

PATIENT
  Sex: Female
  Weight: 136 kg

DRUGS (2)
  1. LYRICA [Suspect]
     Indication: INTERVERTEBRAL DISC DEGENERATION
     Dosage: 50 MG, DAILY
     Dates: start: 20110101
  2. LYRICA [Suspect]
     Indication: NERVE INJURY
     Dosage: 300 MG, DAILY

REACTIONS (4)
  - HYPERSENSITIVITY [None]
  - VOMITING [None]
  - NAUSEA [None]
  - CHEST PAIN [None]
